FAERS Safety Report 9224717 (Version 3)
Quarter: 2013Q3

REPORT INFORMATION
  Report Type: Spontaneous
  Country: US (occurrence: US)
  Receive Date: 20130411
  Receipt Date: 20130916
  Transmission Date: 20140515
  Serious: Yes (Hospitalization, Other)
  Sender: FDA-Public Use
  Company Number: US-PFIZER INC-2013113651

PATIENT
  Age: 43 Year
  Sex: Male
  Weight: 82.99 kg

DRUGS (6)
  1. NEURONTIN [Suspect]
     Indication: DIABETIC NEUROPATHY
     Dosage: 100 MG, UNK
  2. LYRICA [Suspect]
     Indication: DIABETIC NEUROPATHY
     Dosage: 100 MG, 3X/DAY
     Route: 048
  3. LYRICA [Suspect]
     Dosage: UNK
     Route: 048
  4. NORVASC [Suspect]
     Indication: HYPERTENSION
     Dosage: 5 MG, 1X/DAY
     Route: 048
  5. LORTAB [Concomitant]
     Indication: NEURALGIA
     Dosage: UNK
  6. CYMBALTA [Concomitant]
     Dosage: UNK

REACTIONS (7)
  - Renal failure [Unknown]
  - Musculoskeletal disorder [Unknown]
  - Dyspnoea exertional [Unknown]
  - Pneumonia [Unknown]
  - Phantom pain [Unknown]
  - Peripheral coldness [Unknown]
  - Drug ineffective [Unknown]
